FAERS Safety Report 5468492-7 (Version None)
Quarter: 2007Q3

REPORT INFORMATION
  Report Type: 
  Country: None (occurrence: None)
  Receive Date: 20070926
  Receipt Date: 20070709
  Transmission Date: 20080115
  Serious: No
  Sender: FDA-Public Use
  Company Number: US-BRISTOL-MYERS SQUIBB COMPANY-13838560

PATIENT
  Age: 62 Year
  Sex: Female
  Weight: 113 kg

DRUGS (6)
  1. ORENCIA [Suspect]
  2. SULFASALAZINE [Concomitant]
  3. METHOTREXATE [Concomitant]
  4. PLATINOL [Concomitant]
  5. WARFARIN SODIUM [Concomitant]
  6. PRENATAL VITAMINS [Concomitant]

REACTIONS (2)
  - HEADACHE [None]
  - RASH [None]
